FAERS Safety Report 4992874-0 (Version None)
Quarter: 2006Q2

REPORT INFORMATION
  Report Type: 
  Country: None (occurrence: None)
  Receive Date: 20060504
  Receipt Date: 20050921
  Transmission Date: 20061013
  Serious: Yes (Hospitalization)
  Sender: FDA-Public Use
  Company Number: US-MERCK-0509USA03215

PATIENT
  Age: 73 Year
  Sex: Female
  Weight: 117 kg

DRUGS (11)
  1. VIOXX [Suspect]
     Indication: RHEUMATOID ARTHRITIS
     Route: 048
     Dates: start: 19990907, end: 20040801
  2. METHOTREXATE [Concomitant]
     Route: 065
  3. ENBREL [Concomitant]
     Route: 065
  4. COZAAR [Concomitant]
     Route: 048
  5. GLYBURIDE [Concomitant]
     Indication: DIABETES MELLITUS
     Route: 065
  6. ASPIRIN [Concomitant]
     Route: 065
     Dates: start: 20030101
  7. LASIX [Concomitant]
     Route: 065
  8. NEXIUM [Concomitant]
     Route: 065
  9. MECLIZINE [Concomitant]
     Route: 065
  10. FOLIC ACID [Concomitant]
     Route: 065
  11. ENBREL [Concomitant]
     Route: 065

REACTIONS (8)
  - CARDIAC FAILURE CONGESTIVE [None]
  - CORONARY ARTERY DISEASE [None]
  - COUGH [None]
  - DYSPNOEA [None]
  - MYOCARDIAL ISCHAEMIA [None]
  - PNEUMONIA [None]
  - UPPER RESPIRATORY TRACT INFECTION [None]
  - VERTIGO [None]
